FAERS Safety Report 8046408-7 (Version None)
Quarter: 2012Q1

REPORT INFORMATION
  Report Type: 
  Country: None (occurrence: None)
  Receive Date: 20120113
  Receipt Date: 20120109
  Transmission Date: 20120608
  Serious: Yes (Life-Threatening, Hospitalization)
  Sender: FDA-Public Use
  Company Number: TR-ASTRAZENECA-2012SE01781

PATIENT
  Age: 18 Year
  Sex: Female
  Weight: 60 kg

DRUGS (1)
  1. CRESTOR [Suspect]
     Dosage: MENTIONED THAT SHE TOOK 20 TABLETS, THE PHYSICIAN BELIEVES THAT THE PATIENT TOOK ONLY 4 TABLETS
     Route: 048
     Dates: start: 20120107, end: 20120107

REACTIONS (2)
  - OVERDOSE [None]
  - SUICIDE ATTEMPT [None]
